FAERS Safety Report 6818516-7 (Version None)
Quarter: 2010Q3

REPORT INFORMATION
  Report Type: 
  Country: None (occurrence: None)
  Receive Date: 20100706
  Receipt Date: 20080908
  Transmission Date: 20110219
  Serious: No
  Sender: FDA-Public Use
  Company Number: US-PFIZER INC-2008074228

PATIENT

DRUGS (2)
  1. ZITHROMAX [Suspect]
     Indication: LARYNGITIS
  2. ZITHROMAX [Suspect]
     Indication: COUGH

REACTIONS (1)
  - DRUG INEFFECTIVE [None]
